FAERS Safety Report 13581497 (Version 1)
Quarter: 2017Q2

REPORT INFORMATION
  Report Type: Spontaneous
  Country: PL (occurrence: PL)
  Receive Date: 20170525
  Receipt Date: 20170525
  Transmission Date: 20170830
  Serious: Yes (Death, Life-Threatening, Hospitalization, Other)
  Sender: FDA-Public Use
  Company Number: PL-ACCORD-051573

PATIENT
  Age: 14 Year
  Sex: Female

DRUGS (9)
  1. ETOPOSIDE. [Suspect]
     Active Substance: ETOPOSIDE
     Indication: EXTRA-OSSEOUS EWING^S SARCOMA
  2. EPIRUBICIN [Suspect]
     Active Substance: EPIRUBICIN
     Indication: EXTRA-OSSEOUS EWING^S SARCOMA
  3. CARBOPLATIN. [Suspect]
     Active Substance: CARBOPLATIN
     Indication: EXTRA-OSSEOUS EWING^S SARCOMA
  4. VINCRISTINE [Suspect]
     Active Substance: VINCRISTINE
     Indication: EXTRA-OSSEOUS EWING^S SARCOMA
  5. DACTINOMYCIN [Suspect]
     Active Substance: DACTINOMYCIN
     Indication: EXTRA-OSSEOUS EWING^S SARCOMA
  6. IRINOTECAN [Suspect]
     Active Substance: IRINOTECAN
     Indication: EXTRA-OSSEOUS EWING^S SARCOMA
  7. TEMOZOLOMIDE. [Suspect]
     Active Substance: TEMOZOLOMIDE
     Indication: EXTRA-OSSEOUS EWING^S SARCOMA
  8. DOXORUBICIN [Suspect]
     Active Substance: DOXORUBICIN
     Indication: EXTRA-OSSEOUS EWING^S SARCOMA
  9. IFOSFAMIDE. [Suspect]
     Active Substance: IFOSFAMIDE
     Indication: EXTRA-OSSEOUS EWING^S SARCOMA

REACTIONS (6)
  - Febrile neutropenia [Unknown]
  - Drug ineffective [Unknown]
  - Gastrointestinal disorder [Unknown]
  - Systemic candida [Fatal]
  - Bone marrow failure [Unknown]
  - Off label use [Unknown]
